FAERS Safety Report 5346684-5 (Version None)
Quarter: 2007Q2

REPORT INFORMATION
  Report Type: 
  Country: None (occurrence: None)
  Receive Date: 20070605
  Receipt Date: 20070525
  Transmission Date: 20071010
  Serious: Yes (Other)
  Sender: FDA-Public Use
  Company Number: IN-PFIZER INC-2007042738

PATIENT
  Sex: Male

DRUGS (1)
  1. AMLOGARD [Suspect]
     Indication: HYPERTENSION
     Route: 048

REACTIONS (3)
  - BLOOD CREATININE DECREASED [None]
  - FACE OEDEMA [None]
  - PROTEINURIA [None]
